FAERS Safety Report 15802822 (Version 1)
Quarter: 2018Q4

REPORT INFORMATION
  Report Type: Spontaneous
  Country: US (occurrence: US)
  Receive Date: 20181213
  Receipt Date: 20181213
  Transmission Date: 20190205
  Serious: No
  Sender: FDA-Public Use
  Company Number: None

PATIENT
  Sex: Male

DRUGS (1)
  1. FORTEO [Suspect]
     Active Substance: TERIPARATIDE
     Indication: OSTEOPOROSIS
     Route: 058
     Dates: start: 20180921

REACTIONS (6)
  - Bone pain [None]
  - Pain in extremity [None]
  - Headache [None]
  - Pain in jaw [None]
  - Injection site urticaria [None]
  - Pain [None]
